FAERS Safety Report 5857422-1 (Version None)
Quarter: 2008Q3

REPORT INFORMATION
  Report Type: 
  Country: None (occurrence: None)
  Receive Date: 20080818
  Receipt Date: 20080331
  Transmission Date: 20090109
  Serious: No
  Sender: FDA-Public Use
  Company Number: TPA2008A00341

PATIENT
  Age: 74 Year
  Sex: Male
  Weight: 82.5547 kg

DRUGS (9)
  1. ROZEREM [Suspect]
     Indication: CIRCADIAN RHYTHM SLEEP DISORDER
     Dosage: 8 MG, ONCE AT HS, PER ORAL
     Route: 048
     Dates: start: 20080313, end: 20080314
  2. CELEBREX [Concomitant]
  3. NEXIUM [Concomitant]
  4. VYTORIN [Concomitant]
  5. PROSCAR [Concomitant]
  6. MULTIVITAMIN [Concomitant]
  7. OSTEO BI-FLEX (GLUCOSAMINE HYDROCHLORIDE, CHONDROITIN SULFATE) [Concomitant]
  8. ASPIRIN [Concomitant]
  9. LORAZEPAM [Concomitant]

REACTIONS (13)
  - DEPRESSION [None]
  - DISORIENTATION [None]
  - DISTURBANCE IN ATTENTION [None]
  - DIZZINESS [None]
  - FATIGUE [None]
  - HANGOVER [None]
  - HEADACHE [None]
  - INITIAL INSOMNIA [None]
  - MEMORY IMPAIRMENT [None]
  - MIDDLE INSOMNIA [None]
  - POOR QUALITY SLEEP [None]
  - RHINORRHOEA [None]
  - SOMNOLENCE [None]
